FAERS Safety Report 11475062 (Version 1)
Quarter: 2015Q3

REPORT INFORMATION
  Report Type: Spontaneous
  Country: US (occurrence: None)
  Receive Date: 20150902
  Receipt Date: 20150902
  Transmission Date: 20151125
  Serious: Yes (Hospitalization)
  Sender: FDA-Public Use
  Company Number: A-US2015-111596

PATIENT
  Age: 54 Year
  Sex: Female

DRUGS (3)
  1. ADCIRCA [Concomitant]
     Active Substance: TADALAFIL
  2. LETAIRIS [Concomitant]
     Active Substance: AMBRISENTAN
  3. VELETRI [Suspect]
     Active Substance: EPOPROSTENOL
     Indication: COR PULMONALE CHRONIC
     Dosage: 35 NG/KG, PER MIN
     Route: 042
     Dates: start: 20120820

REACTIONS (7)
  - Device leakage [None]
  - Device connection issue [None]
  - Oxygen consumption increased [None]
  - Drug dose omission [None]
  - Anxiety [None]
  - Dyspnoea [None]
  - Dizziness [None]
